FAERS Safety Report 8038058-3 (Version None)
Quarter: 2012Q1

REPORT INFORMATION
  Report Type: 
  Country: None (occurrence: None)
  Receive Date: 20120111
  Receipt Date: 20120104
  Transmission Date: 20120608
  Serious: Yes (Other)
  Sender: FDA-Public Use
  Company Number: BR-MERCK-1201BRA00029

PATIENT
  Sex: Male
  Weight: 77 kg

DRUGS (1)
  1. COSOPT [Suspect]
     Indication: INTRAOCULAR PRESSURE TEST
     Route: 047
     Dates: start: 20020101

REACTIONS (2)
  - GOITRE [None]
  - EXPIRED DRUG ADMINISTERED [None]
